FAERS Safety Report 8132972-6 (Version None)
Quarter: 2012Q1

REPORT INFORMATION
  Report Type: 
  Country: None (occurrence: None)
  Receive Date: 20120103
  Receipt Date: 20110923
  Transmission Date: 20120608
  Serious: No
  Sender: FDA-Public Use
  Company Number: AE-2011-001754

PATIENT
  Sex: Female
  Weight: 108.8633 kg

DRUGS (4)
  1. INCIVEK [Suspect]
     Dosage: 2250 MG (750 MG,3 IN 1 D)
     Dates: start: 20110723
  2. COPEGUS [Concomitant]
  3. ZOFRAN [Concomitant]
  4. PEGASYS [Concomitant]

REACTIONS (3)
  - BLOOD POTASSIUM DECREASED [None]
  - HYPERTENSION [None]
  - OEDEMA PERIPHERAL [None]
